FAERS Safety Report 7289948-0 (Version None)
Quarter: 2011Q1

REPORT INFORMATION
  Report Type: 
  Country: None (occurrence: None)
  Receive Date: 20110214
  Receipt Date: 20110201
  Transmission Date: 20110831
  Serious: Yes (Death)
  Sender: FDA-Public Use
  Company Number: CA-NAPPMUNDI-DEU-2011-0006975

PATIENT
  Age: 15 Year
  Sex: Male
  Weight: 100 kg

DRUGS (1)
  1. HYDROMORPH CONTIN 24 MG [Suspect]
     Indication: DRUG ABUSE

REACTIONS (6)
  - ACCIDENTAL OVERDOSE [None]
  - DRUG ABUSE [None]
  - PNEUMONIA ASPIRATION [None]
  - LOSS OF CONSCIOUSNESS [None]
  - THEFT [None]
  - PRURITUS [None]
